FAERS Safety Report 14940689 (Version 6)
Quarter: 2018Q4

REPORT INFORMATION
  Report Type: Spontaneous
  Country: US (occurrence: US)
  Receive Date: 20180525
  Receipt Date: 20181221
  Transmission Date: 20190204
  Serious: Yes (Hospitalization, Other)
  Sender: FDA-Public Use
  Company Number: US-ACTELION-A-US2018-171837

PATIENT
  Age: 48 Year
  Sex: Female
  Weight: 69.84 kg

DRUGS (9)
  1. UPTRAVI [Suspect]
     Active Substance: SELEXIPAG
     Indication: PULMONARY ARTERIAL HYPERTENSION
     Dosage: 1600 MCG, BID
     Route: 048
     Dates: start: 20170612, end: 20181010
  2. ADCIRCA [Suspect]
     Active Substance: TADALAFIL
     Indication: PULMONARY HYPERTENSION
     Dosage: 40 MG, UNK
     Route: 065
  3. REMODULIN [Suspect]
     Active Substance: TREPROSTINIL
     Dosage: 16 NG, UNK
     Route: 065
     Dates: start: 20181107
  4. LASIX [Concomitant]
     Active Substance: FUROSEMIDE
  5. AMBRISENTAN [Suspect]
     Active Substance: AMBRISENTAN
     Indication: PULMONARY HYPERTENSION
     Dosage: 10 MG, QD
     Route: 048
     Dates: start: 20141201
  6. LISINOPRIL. [Concomitant]
     Active Substance: LISINOPRIL
  7. REMODULIN [Suspect]
     Active Substance: TREPROSTINIL
     Indication: PULMONARY ARTERIAL HYPERTENSION
     Dosage: 14 MG/KG, Q1 SECOND
     Route: 065
     Dates: start: 20181010
  8. REMODULIN [Suspect]
     Active Substance: TREPROSTINIL
     Dosage: 18 NG, UNK
     Route: 065
     Dates: start: 20181105
  9. OXYGEN. [Concomitant]
     Active Substance: OXYGEN

REACTIONS (12)
  - Palpitations [Not Recovered/Not Resolved]
  - Pain in extremity [Unknown]
  - Chest pain [Not Recovered/Not Resolved]
  - Pulmonary arterial hypertension [Unknown]
  - Weight increased [Unknown]
  - Disease progression [Unknown]
  - Headache [Unknown]
  - Fluid retention [Unknown]
  - Dyspnoea [Unknown]
  - Catheterisation cardiac [Recovered/Resolved]
  - Myalgia [Unknown]
  - Condition aggravated [Unknown]

NARRATIVE: CASE EVENT DATE: 20180501
